FAERS Safety Report 4274092-7 (Version None)
Quarter: 2004Q1

REPORT INFORMATION
  Report Type: 
  Country: None (occurrence: None)
  Receive Date: 20040120
  Receipt Date: 20040120
  Transmission Date: 20041129
  Serious: Yes (Hospitalization)
  Sender: FDA-Public Use
  Company Number: FR-GLAXOSMITHKLINE-A0493978A

PATIENT
  Age: 74 Year
  Sex: Female

DRUGS (3)
  1. NAVELBINE [Suspect]
     Indication: NON-SMALL CELL LUNG CANCER
     Route: 048
     Dates: start: 20031220
  2. PREVISCAN [Suspect]
     Indication: PROPHYLAXIS
     Route: 065
     Dates: start: 20031001
  3. FENOFIBRATE [Concomitant]

REACTIONS (3)
  - CEREBROVASCULAR ACCIDENT [None]
  - HEMIPLEGIA [None]
  - MYOCARDIAL INFARCTION [None]
